FAERS Safety Report 21367789 (Version 2)
Quarter: 2022Q4

REPORT INFORMATION
  Report Type: Spontaneous
  Country: US (occurrence: US)
  Receive Date: 20220923
  Receipt Date: 20221010
  Transmission Date: 20230112
  Serious: No
  Sender: FDA-Public Use
  Company Number: US-PURDUE-USA-2022-0295840

PATIENT
  Age: 59 Year
  Sex: Male

DRUGS (3)
  1. ACETAMINOPHEN\OXYCODONE HYDROCHLORIDE [Suspect]
     Active Substance: ACETAMINOPHEN\OXYCODONE HYDROCHLORIDE
     Indication: Pudendal canal syndrome
     Dosage: 7.5MG/ 325MG, THREE TABLETS ONCE, DAILY
     Route: 048
  2. ACETAMINOPHEN\OXYCODONE HYDROCHLORIDE [Suspect]
     Active Substance: ACETAMINOPHEN\OXYCODONE HYDROCHLORIDE
     Indication: Pain
     Dosage: 10MG/325MG THREE TABLETS, DAILY
     Route: 048
     Dates: start: 20220801
  3. ACETAMINOPHEN\OXYCODONE HYDROCHLORIDE [Suspect]
     Active Substance: ACETAMINOPHEN\OXYCODONE HYDROCHLORIDE
     Dosage: 10MG/325MG 1 TABLET, DAILY
     Route: 048

REACTIONS (6)
  - Euphoric mood [Unknown]
  - Sedation [Unknown]
  - Feeling of relaxation [Unknown]
  - Product availability issue [Unknown]
  - Drug withdrawal syndrome [Unknown]
  - Drug ineffective [Unknown]

NARRATIVE: CASE EVENT DATE: 20220803
